FAERS Safety Report 8053938-0 (Version None)
Quarter: 2012Q1

REPORT INFORMATION
  Report Type: 
  Country: None (occurrence: None)
  Receive Date: 20120118
  Receipt Date: 20120111
  Transmission Date: 20120608
  Serious: Yes (Hospitalization, Other)
  Sender: FDA-Public Use
  Company Number: PR-ABBOTT-11P-131-0885822-00

PATIENT
  Sex: Female
  Weight: 80.358 kg

DRUGS (3)
  1. CARDURA [Concomitant]
     Indication: HYPERTENSION
     Route: 048
  2. PROCARDIA [Concomitant]
     Indication: HYPERTENSION
     Route: 048
  3. HUMIRA [Suspect]
     Indication: RHEUMATOID ARTHRITIS
     Route: 058
     Dates: start: 20070101, end: 20111101

REACTIONS (3)
  - RENAL MASS [None]
  - HYPERTENSION [None]
  - RENAL FAILURE [None]
